FAERS Safety Report 5136971-8 (Version None)
Quarter: 2006Q4

REPORT INFORMATION
  Report Type: 
  Country: None (occurrence: None)
  Receive Date: 20061030
  Receipt Date: 20061019
  Transmission Date: 20070319
  Serious: Yes (Other)
  Sender: FDA-Public Use
  Company Number: US-JNJFOC-20061004350

PATIENT
  Sex: Male

DRUGS (14)
  1. INFLIXIMAB [Suspect]
     Indication: RHEUMATOID ARTHRITIS
     Route: 042
  2. ASPIRIN [Concomitant]
  3. CALCIUM GLUCONATE [Concomitant]
  4. FOLIC ACID [Concomitant]
  5. IMDUR [Concomitant]
  6. LISINOPRIL [Concomitant]
  7. METHOTREXATE SODIUM [Concomitant]
  8. OCUVITE [Concomitant]
  9. PREDNISONE TAB [Concomitant]
  10. SERTRALINE [Concomitant]
  11. TYLENOL [Concomitant]
     Dosage: 500 MG 4 TABLETS DAILY
  12. ZOCOR [Concomitant]
  13. KLONAPIN [Concomitant]
  14. MULTI-VITAMIN [Concomitant]

REACTIONS (1)
  - PROSTATE CANCER [None]
